FAERS Safety Report 11646999 (Version 1)
Quarter: 2015Q4

REPORT INFORMATION
  Report Type: Spontaneous
  Country: None (occurrence: US)
  Receive Date: 20151020
  Receipt Date: 20151020
  Transmission Date: 20160304
  Serious: No
  Sender: FDA-Public Use
  Company Number: US-AMPHASTAR PHARMACEUTICALS, INC.-1043220

PATIENT
  Age: 70 Year
  Sex: Female
  Weight: 63.64 kg

DRUGS (7)
  1. ALLEGRA [Concomitant]
     Active Substance: FEXOFENADINE HYDROCHLORIDE
  2. INSULIN [Concomitant]
     Active Substance: INSULIN NOS
  3. PRINIVIL [Concomitant]
     Active Substance: LISINOPRIL
  4. POTASSIUM SUPPLEMENT [Concomitant]
     Active Substance: POTASSIUM
  5. METOPROLOL [Concomitant]
     Active Substance: METOPROLOL
  6. ENOXAPARIN SODIUM. [Suspect]
     Active Substance: ENOXAPARIN SODIUM
     Indication: COLONOSCOPY
     Route: 058
     Dates: start: 20140928, end: 20141003
  7. ZANTAC [Concomitant]
     Active Substance: RANITIDINE HYDROCHLORIDE

REACTIONS (6)
  - Dizziness [Recovered/Resolved]
  - Paraesthesia oral [Recovering/Resolving]
  - Nausea [Recovered/Resolved]
  - Injection site bruising [Not Recovered/Not Resolved]
  - Contusion [Not Recovered/Not Resolved]
  - Dyspnoea [Recovered/Resolved]

NARRATIVE: CASE EVENT DATE: 20140928
